FAERS Safety Report 5143551-7 (Version None)
Quarter: 2006Q4

REPORT INFORMATION
  Report Type: 
  Country: None (occurrence: None)
  Receive Date: 20061103
  Receipt Date: 20061023
  Transmission Date: 20070319
  Serious: Yes (Hospitalization)
  Sender: FDA-Public Use
  Company Number: PHBS2006US16792

PATIENT
  Age: 68 Year
  Sex: Male

DRUGS (5)
  1. AMLODIPINE BESILATE,BENAZEPRIL HYDROCHLORIDE [Suspect]
     Route: 065
  2. RAMELTEON [Suspect]
     Route: 065
  3. CITALOPRAM HYDROBROMIDE [Suspect]
     Route: 065
  4. NIACIN [Suspect]
     Route: 065
  5. ASPIRIN [Suspect]
     Route: 065

REACTIONS (6)
  - ACTIVITIES OF DAILY LIVING IMPAIRED [None]
  - DECREASED APPETITE [None]
  - DEMENTIA [None]
  - DEPRESSION [None]
  - HALLUCINATION, VISUAL [None]
  - SLEEP DISORDER [None]
